FAERS Safety Report 7208018-0 (Version None)
Quarter: 2011Q1

REPORT INFORMATION
  Report Type: 
  Country: None (occurrence: None)
  Receive Date: 20110104
  Receipt Date: 20101228
  Transmission Date: 20110831
  Serious: No
  Sender: FDA-Public Use
  Company Number: US-PFIZER INC-2010180111

PATIENT
  Age: 69 Year
  Sex: Female

DRUGS (7)
  1. SYNTHROID [Concomitant]
  2. ACTOS [Concomitant]
  3. CHLORDIAZEPOXIDE/CLIDINIUM [Concomitant]
  4. LYRICA [Concomitant]
  5. LIPITOR [Suspect]
  6. OMEPRAZOLE [Concomitant]
  7. FLUOXETINE [Concomitant]

REACTIONS (1)
  - MUSCLE SPASMS [None]
